FAERS Safety Report 6638218-X (Version None)
Quarter: 2010Q1

REPORT INFORMATION
  Report Type: 
  Country: None (occurrence: None)
  Receive Date: 20100317
  Receipt Date: 20100312
  Transmission Date: 20100710
  Serious: Yes (Life-Threatening, Hospitalization, Other)
  Sender: FDA-Public Use
  Company Number: DK-ROCHE-673403

PATIENT
  Sex: Male

DRUGS (9)
  1. TORADOL [Suspect]
     Indication: SURGERY
     Route: 065
     Dates: start: 20091102, end: 20091103
  2. XARELTO [Suspect]
     Dosage: OTHER INDICATION: PRIMARY TOTAL KNEE ARTHROPLASTY
     Route: 048
     Dates: start: 20091102, end: 20091104
  3. PLAVIX [Suspect]
     Indication: STENT PLACEMENT
     Route: 065
     Dates: start: 20040101, end: 20091104
  4. PLAVIX [Suspect]
     Route: 065
     Dates: start: 20091110
  5. MAGNYL [Suspect]
     Indication: STENT PLACEMENT
     Route: 065
     Dates: start: 20040101, end: 20091104
  6. MAGNYL [Suspect]
     Route: 065
     Dates: start: 20091110
  7. SELO-ZOK [Concomitant]
     Indication: HYPERTENSION
     Dates: start: 20090121
  8. ATACAND [Concomitant]
     Indication: HYPERTENSION
     Dates: start: 20090121
  9. SIMVASTATIN [Concomitant]
     Indication: HYPERCHOLESTEROLAEMIA
     Dates: start: 20090121

REACTIONS (6)
  - ANAEMIA [None]
  - INSOMNIA [None]
  - MEDICAL DEVICE COMPLICATION [None]
  - OPERATIVE HAEMORRHAGE [None]
  - POST PROCEDURAL HAEMORRHAGE [None]
  - WHEEZING [None]
